FAERS Safety Report 13377034 (Version 1)
Quarter: 2017Q1

REPORT INFORMATION
  Report Type: Spontaneous
  Country: AU (occurrence: AU)
  Receive Date: 20170328
  Receipt Date: 20170328
  Transmission Date: 20170429
  Serious: Yes (Death, Other)
  Sender: FDA-Public Use
  Company Number: AU-CELGENEUS-AUS-2015125355

PATIENT

DRUGS (2)
  1. AZACITIDINE INJECTABLE [Suspect]
     Active Substance: AZACITIDINE
     Indication: MYELODYSPLASTIC SYNDROME
     Route: 058
  2. AZACITIDINE INJECTABLE [Suspect]
     Active Substance: AZACITIDINE
     Indication: ACUTE MYELOID LEUKAEMIA

REACTIONS (14)
  - Febrile neutropenia [Unknown]
  - Bacteraemia [Unknown]
  - Bacterial infection [Unknown]
  - Urinary tract infection [Unknown]
  - Pneumonia [Fatal]
  - Abdominal infection [Fatal]
  - Aspergillus infection [Unknown]
  - Infection [Unknown]
  - Bacteraemia [Fatal]
  - Upper respiratory tract infection [Unknown]
  - Infection parasitic [Unknown]
  - Viral infection [Unknown]
  - Fungal skin infection [Fatal]
  - Soft tissue infection [Unknown]
